FAERS Safety Report 18958920 (Version 2)
Quarter: 2021Q1

REPORT INFORMATION
  Report Type: Spontaneous
  Country: US (occurrence: US)
  Receive Date: 20210302
  Receipt Date: 20210324
  Transmission Date: 20210420
  Serious: Yes (Other)
  Sender: FDA-Public Use
  Company Number: US-TORRENT-00010920

PATIENT
  Age: 22 Year
  Sex: Male

DRUGS (1)
  1. ZOLPIDEM [Suspect]
     Active Substance: ZOLPIDEM TARTRATE
     Indication: ANXIETY
     Dosage: UNKNOWN

REACTIONS (4)
  - Intentional product misuse [Recovered/Resolved]
  - Self-medication [Recovered/Resolved]
  - Seizure [Recovered/Resolved]
  - Withdrawal syndrome [Recovered/Resolved]
